FAERS Safety Report 9743188 (Version 2)
Quarter: 2013Q4

REPORT INFORMATION
  Report Type: Spontaneous
  Country: US (occurrence: US)
  Receive Date: 20131210
  Receipt Date: 20131210
  Transmission Date: 20140711
  Serious: No
  Sender: FDA-Public Use
  Company Number: US-GILEAD-2009-0024303

PATIENT
  Sex: Female

DRUGS (16)
  1. LETAIRIS [Suspect]
     Indication: PULMONARY ARTERIAL HYPERTENSION
     Route: 048
     Dates: start: 20090530
  2. REVATIO [Concomitant]
     Indication: PULMONARY ARTERIAL HYPERTENSION
  3. LEVAQUIN [Concomitant]
  4. IMURAN [Concomitant]
  5. DYAZIDE [Concomitant]
  6. NORVASC [Concomitant]
  7. NADOLOL [Concomitant]
  8. LEVOTHYROXINE [Concomitant]
  9. PLAQUENIL [Concomitant]
  10. PREDNISONE [Concomitant]
  11. KLOR-CON [Concomitant]
  12. KEPPRA [Concomitant]
  13. FOLIC ACID [Concomitant]
  14. VITAMIN C [Concomitant]
  15. CITRUCEL [Concomitant]
  16. MULTIVITAMIN [Concomitant]

REACTIONS (4)
  - Hypotension [Unknown]
  - White blood cell count decreased [Unknown]
  - Headache [Unknown]
  - Anaemia [Unknown]
